FAERS Safety Report 4711073-0 (Version None)
Quarter: 2005Q3

REPORT INFORMATION
  Report Type: 
  Country: None (occurrence: None)
  Receive Date: 20050708
  Receipt Date: 20050627
  Transmission Date: 20060218
  Serious: Yes (Other)
  Sender: FDA-Public Use
  Company Number: 2005093889

PATIENT
  Age: 60 Year
  Sex: Female

DRUGS (1)
  1. XALATAN [Suspect]
     Indication: GLAUCOMA
     Dosage: 1 DROP (1 DROP, QD), OPHTHALMIC
     Route: 047
     Dates: start: 20040101

REACTIONS (2)
  - GASTRITIS [None]
  - GASTROENTERITIS HELICOBACTER [None]
